FAERS Safety Report 7550318-9 (Version None)
Quarter: 2011Q2

REPORT INFORMATION
  Report Type: 
  Country: None (occurrence: None)
  Receive Date: 20110615
  Receipt Date: 20110531
  Transmission Date: 20111010
  Serious: Yes (Other)
  Sender: FDA-Public Use
  Company Number: US-BAYER-2011-047584

PATIENT
  Age: 73 Year
  Sex: Female
  Weight: 75.737 kg

DRUGS (5)
  1. DONEPEZIL HCL [Concomitant]
  2. ALEVE (CAPLET) [Suspect]
     Indication: PAIN
     Dosage: 2 DF, PRN
     Route: 048
     Dates: start: 20100101
  3. METFORMIN HCL [Concomitant]
  4. AMLODIPINE BESYLATE [Concomitant]
  5. BENAZEPRIL HYDROCHLORIDE [Concomitant]

REACTIONS (1)
  - HEPATOMEGALY [None]
